FAERS Safety Report 6294916-1 (Version None)
Quarter: 2009Q3

REPORT INFORMATION
  Report Type: 
  Country: None (occurrence: None)
  Receive Date: 20090731
  Receipt Date: 20090731
  Transmission Date: 20100115
  Serious: Yes (Other)
  Sender: FDA-Public Use
  Company Number: None

PATIENT
  Age: 46 Year
  Sex: Female
  Weight: 68.9467 kg

DRUGS (2)
  1. PRISTIQ [Suspect]
     Indication: DEPRESSION
     Dosage: 1, DAILY, PO
     Route: 048
     Dates: start: 20080901, end: 20090701
  2. PRISTIQ [Suspect]
     Indication: MENOPAUSAL SYMPTOMS
     Dosage: 1, DAILY, PO
     Route: 048
     Dates: start: 20080901, end: 20090701

REACTIONS (1)
  - ALCOHOLISM [None]
